FAERS Safety Report 7298586-5 (Version None)
Quarter: 2011Q1

REPORT INFORMATION
  Report Type: 
  Country: None (occurrence: None)
  Receive Date: 20110214
  Receipt Date: 20110214
  Transmission Date: 20110831
  Serious: Yes (Death, Hospitalization)
  Sender: FDA-Public Use
  Company Number: None

PATIENT
  Age: 62 Year
  Sex: Female

DRUGS (6)
  1. TUMS [Concomitant]
  2. ACETAMINOPHEN [Concomitant]
  3. LIDODERM [Concomitant]
  4. PRILOSEC OTC [Concomitant]
  5. ARTHROTEC [Suspect]
     Dates: start: 20110113, end: 20110120
  6. ALEVE [Concomitant]

REACTIONS (1)
  - WRONG TECHNIQUE IN DRUG USAGE PROCESS [None]
